FAERS Safety Report 15994711 (Version 1)
Quarter: 2019Q1

REPORT INFORMATION
  Report Type: Spontaneous
  Country: US (occurrence: US)
  Receive Date: 20190221
  Receipt Date: 20190221
  Transmission Date: 20190418
  Serious: Yes (Other)
  Sender: FDA-Public Use
  Company Number: None

PATIENT
  Age: 13 Year
  Sex: Female
  Weight: 37.8 kg

DRUGS (3)
  1. HYDROCORTISONE   0.5% [Concomitant]
     Active Substance: HYDROCORTISONE
  2. BANADRYL [Concomitant]
  3. JADENU [Suspect]
     Active Substance: DEFERASIROX
     Indication: THALASSAEMIA BETA
     Route: 048
     Dates: start: 20181031

REACTIONS (1)
  - Rash pruritic [None]

NARRATIVE: CASE EVENT DATE: 20190221
